FAERS Safety Report 4305904-6 (Version None)
Quarter: 2004Q1

REPORT INFORMATION
  Report Type: 
  Country: None (occurrence: None)
  Receive Date: 20040226
  Receipt Date: 20031223
  Transmission Date: 20041129
  Serious: Yes (Life-Threatening, Disabling, Other)
  Sender: FDA-Public Use
  Company Number: WAES 0312USA02429

PATIENT
  Age: 51 Year
  Sex: Female
  Weight: 98 kg

DRUGS (2)
  1. VIOXX [Suspect]
     Indication: BACK PAIN
     Route: 048
     Dates: start: 20030903, end: 20030101
  2. VIOXX [Suspect]
     Indication: INTERVERTEBRAL DISC PROTRUSION
     Route: 048
     Dates: start: 20030903, end: 20030101

REACTIONS (4)
  - ANURIA [None]
  - CYSTITIS [None]
  - URINARY RETENTION [None]
  - URINE OUTPUT DECREASED [None]
